FAERS Safety Report 23844030 (Version 1)
Quarter: 2024Q2

REPORT INFORMATION
  Report Type: Spontaneous
  Country: US (occurrence: US)
  Receive Date: 20240510
  Receipt Date: 20240510
  Transmission Date: 20240716
  Serious: No
  Sender: FDA-Public Use
  Company Number: US-SA-SAC20240506000552

PATIENT
  Sex: Female
  Weight: 65.7 kg

DRUGS (2)
  1. DUPIXENT [Suspect]
     Active Substance: DUPILUMAB
     Indication: Eosinophilic oesophagitis
     Dosage: 300 MG EVERY 7 DAYS QW
     Route: 058
  2. AVSOLA [Suspect]
     Active Substance: INFLIXIMAB-AXXQ

REACTIONS (3)
  - Illness [Unknown]
  - Incorrect dose administered [Unknown]
  - Stress [Unknown]
